FAERS Safety Report 4269543-8 (Version None)
Quarter: 2004Q1

REPORT INFORMATION
  Report Type: 
  Country: None (occurrence: None)
  Receive Date: 20040113
  Receipt Date: 20040105
  Transmission Date: 20041129
  Serious: Yes (Hospitalization)
  Sender: FDA-Public Use
  Company Number: PHRM2004FR00448

PATIENT
  Age: 73 Year
  Sex: Female
  Weight: 80 kg

DRUGS (9)
  1. GLEEVEC [Suspect]
     Indication: CHRONIC MYELOID LEUKAEMIA
     Route: 048
     Dates: start: 20030901, end: 20031031
  2. PREVISCAN [Suspect]
     Indication: CARDIAC ASSISTANCE DEVICE USER
     Route: 048
     Dates: end: 20031103
  3. OMEPRAZOLE [Concomitant]
     Dosage: 20 MG, QD
     Route: 048
  4. BISOPROLOL FUMARATE [Concomitant]
     Dosage: 1.25 MG, BID
     Route: 048
  5. ZYLORIC ^GLAXO WELLCOME^ [Concomitant]
     Dosage: 200 MG, QD
  6. LASILIX [Concomitant]
     Dosage: 1 DF, QD
     Route: 048
  7. FUMAFER [Concomitant]
  8. IMOVANE [Concomitant]
  9. HEPT-A-MYL [Concomitant]

REACTIONS (14)
  - APHASIA [None]
  - CONFUSIONAL STATE [None]
  - DRUG INTERACTION [None]
  - EAR DISORDER [None]
  - GASTRIC ULCER HAEMORRHAGE [None]
  - HEADACHE [None]
  - INTERNATIONAL NORMALISED RATIO INCREASED [None]
  - PROTHROMBIN TIME RATIO DECREASED [None]
  - PROTHROMBIN TIME SHORTENED [None]
  - PSYCHOMOTOR SKILLS IMPAIRED [None]
  - SUBDURAL HAEMATOMA [None]
  - SUBDURAL HAEMATOMA EVACUATION [None]
  - THROMBOCYTOPENIA [None]
  - VISUAL DISTURBANCE [None]
